FAERS Safety Report 9562307 (Version 1)
Quarter: 2013Q3

REPORT INFORMATION
  Report Type: Spontaneous
  Country: BR (occurrence: BR)
  Receive Date: 20130927
  Receipt Date: 20130927
  Transmission Date: 20140515
  Serious: Yes (Other)
  Sender: FDA-Public Use
  Company Number: BR-ABBVIE-13P-020-1150644-00

PATIENT
  Age: 42 Year
  Sex: Female
  Weight: 72 kg

DRUGS (9)
  1. HUMIRA [Suspect]
     Indication: RHEUMATOID ARTHRITIS
     Route: 058
     Dates: start: 20090101
  2. HUMIRA [Suspect]
     Route: 058
     Dates: start: 20130416
  3. METHOTREXATE [Concomitant]
     Indication: RHEUMATOID ARTHRITIS
     Route: 058
     Dates: start: 20070823
  4. PURAN T4 [Concomitant]
     Indication: THYROID DISORDER
     Route: 048
     Dates: start: 1999
  5. PRELONE [Concomitant]
     Indication: INFLAMMATION
     Route: 048
     Dates: start: 1999
  6. PRELONE [Concomitant]
     Indication: PROPHYLAXIS
  7. OMEPRAZOLE [Concomitant]
     Indication: GASTRIC DISORDER
     Route: 048
     Dates: start: 1999
  8. ARTEMIDIS [Concomitant]
     Indication: CONTRACEPTION
     Route: 048
     Dates: start: 1999
  9. CIPROFIBRATE [Concomitant]
     Indication: BLOOD CHOLESTEROL ABNORMAL
     Route: 048
     Dates: start: 201307

REACTIONS (5)
  - Intervertebral disc protrusion [Unknown]
  - Pain [Unknown]
  - Weight increased [Unknown]
  - Blood cholesterol abnormal [Recovering/Resolving]
  - Swelling [Unknown]
